FAERS Safety Report 5191933-X (Version None)
Quarter: 2006Q4

REPORT INFORMATION
  Report Type: 
  Country: None (occurrence: None)
  Receive Date: 20061220
  Receipt Date: 20061204
  Transmission Date: 20070319
  Serious: Yes (Other)
  Sender: FDA-Public Use
  Company Number: PHO-2006-045

PATIENT

DRUGS (1)
  1. PHOTOFRIN [Suspect]
     Indication: BRAIN NEOPLASM
     Dosage: 2M/KG, INTRAVENOUS, 1 ADMINISTRATION
     Route: 042

REACTIONS (1)
  - DEEP VEIN THROMBOSIS [None]
